FAERS Safety Report 7639608-9 (Version None)
Quarter: 2011Q3

REPORT INFORMATION
  Report Type: 
  Country: None (occurrence: None)
  Receive Date: 20110721
  Receipt Date: 20110708
  Transmission Date: 20111222
  Serious: Yes (Other)
  Sender: FDA-Public Use
  Company Number: 2011AP001340

PATIENT
  Age: 61 Year
  Sex: Male

DRUGS (4)
  1. AZATHIOPRINE [Concomitant]
  2. PREDNISOLONE [Concomitant]
  3. MYCOPHENOLATE MOFETIL [Suspect]
     Indication: IMMUNOSUPPRESSION
     Dosage: 2 G; QD
     Dates: start: 20050601
  4. CYCLOSPORINE [Concomitant]

REACTIONS (2)
  - HYPOGAMMAGLOBULINAEMIA [None]
  - BRONCHIECTASIS [None]
